FAERS Safety Report 16538086 (Version 3)
Quarter: 2019Q3

REPORT INFORMATION
  Report Type: Spontaneous
  Country: US (occurrence: US)
  Receive Date: 20190708
  Receipt Date: 20190819
  Transmission Date: 20191004
  Serious: No
  Sender: FDA-Public Use
  Company Number: US-SA-2019SA177524

PATIENT
  Age: 15 Year

DRUGS (19)
  1. DUPIXENT [Suspect]
     Active Substance: DUPILUMAB
     Dosage: 200 MG, QOW
     Route: 058
     Dates: start: 20190702
  2. ALBUTEROL HFA [Concomitant]
     Active Substance: ALBUTEROL SULFATE
     Indication: ASTHMA
     Dosage: UNK
  3. CYCLOSPORINE. [Concomitant]
     Active Substance: CYCLOSPORINE
     Indication: DERMATITIS ATOPIC
     Dosage: UNK
     Route: 048
  4. MONTELUKAST [Concomitant]
     Active Substance: MONTELUKAST SODIUM
     Indication: ASTHMA
     Dosage: UNK
     Route: 048
  5. DUPIXENT [Suspect]
     Active Substance: DUPILUMAB
     Indication: ASTHMA
     Dosage: 300 MG, QOW
     Route: 058
     Dates: start: 20190522
  6. DUPIXENT [Suspect]
     Active Substance: DUPILUMAB
     Dosage: 300 MG, QOW
     Route: 058
     Dates: start: 20190621
  7. PREDNISONE. [Concomitant]
     Active Substance: PREDNISONE
     Indication: ASTHMA
     Dosage: UNK
     Route: 048
  8. DULERA [Concomitant]
     Active Substance: FORMOTEROL FUMARATE DIHYDRATE\MOMETASONE FUROATE
     Indication: ASTHMA
     Dosage: UNK
  9. CLARITIN [CLARITHROMYCIN] [Concomitant]
     Active Substance: CLARITHROMYCIN
     Indication: HYPERSENSITIVITY
     Dosage: UNK
     Route: 048
  10. CLOBETASOL [Concomitant]
     Active Substance: CLOBETASOL
     Indication: DERMATITIS ATOPIC
     Dosage: UNK
     Route: 061
  11. EPINEPHRINE. [Concomitant]
     Active Substance: EPINEPHRINE
     Indication: FOOD ALLERGY
     Dosage: UNK
     Route: 030
  12. DUPIXENT [Suspect]
     Active Substance: DUPILUMAB
     Indication: DERMATITIS ATOPIC
     Dosage: 300 MG, QOW
     Route: 058
     Dates: start: 20190315
  13. DUPIXENT [Suspect]
     Active Substance: DUPILUMAB
     Dosage: 300 MG, QOW
     Route: 058
     Dates: start: 20190607
  14. DUPIXENT [Suspect]
     Active Substance: DUPILUMAB
     Dosage: 200 MG, QOW
     Route: 058
     Dates: start: 20190718, end: 20190802
  15. DOXEPIN [Concomitant]
     Active Substance: DOXEPIN
     Indication: DERMATITIS ATOPIC
     Dosage: UNK
     Route: 048
  16. IPRATROPIUM [Concomitant]
     Active Substance: IPRATROPIUM
     Indication: ASTHMA
     Dosage: UNK
  17. PAZEO [Concomitant]
     Active Substance: OLOPATADINE HYDROCHLORIDE
     Indication: CONJUNCTIVITIS ALLERGIC
     Dosage: UNK
  18. SPIRIVA [Concomitant]
     Active Substance: TIOTROPIUM BROMIDE MONOHYDRATE
     Indication: ASTHMA
     Dosage: UNK
     Route: 055
  19. ELIDEL [Concomitant]
     Active Substance: PIMECROLIMUS
     Indication: DERMATITIS ATOPIC
     Dosage: UNK
     Route: 061

REACTIONS (2)
  - Conjunctivitis [Not Recovered/Not Resolved]
  - Product use issue [Unknown]

NARRATIVE: CASE EVENT DATE: 20190520
